FAERS Safety Report 9204635 (Version 1)
Quarter: 2013Q2

REPORT INFORMATION
  Report Type: Report from Study
  Country: CA (occurrence: CA)
  Receive Date: 20130402
  Receipt Date: 20130402
  Transmission Date: 20140414
  Serious: Yes (Other)
  Sender: FDA-Public Use
  Company Number: CA-JNJFOC-20130313386

PATIENT
  Age: 62 Year
  Sex: Female
  Weight: 92.6 kg

DRUGS (3)
  1. REMICADE [Suspect]
     Indication: PSORIATIC ARTHROPATHY
     Route: 042
     Dates: start: 20130211
  2. REMICADE [Suspect]
     Indication: PSORIATIC ARTHROPATHY
     Route: 042
  3. REMICADE [Suspect]
     Indication: PSORIATIC ARTHROPATHY
     Dosage: 7 VIALS
     Route: 042
     Dates: start: 20130325

REACTIONS (3)
  - Anaemia [Unknown]
  - Psoriatic arthropathy [Unknown]
  - Faeces discoloured [Unknown]
